FAERS Safety Report 14260115 (Version 2)
Quarter: 2017Q4

REPORT INFORMATION
  Report Type: Spontaneous
  Country: IT (occurrence: IT)
  Receive Date: 20171207
  Receipt Date: 20171229
  Transmission Date: 20180321
  Serious: Yes (Hospitalization, Other)
  Sender: FDA-Public Use
  Company Number: IT-TEVA-2017-IT-828712

PATIENT
  Sex: Male

DRUGS (14)
  1. LAMIVUDINE. [Interacting]
     Active Substance: LAMIVUDINE
     Indication: HIV INFECTION
     Route: 065
  2. DACLATASVIR DIHYDROCHLORIDE [Interacting]
     Active Substance: DACLATASVIR DIHYDROCHLORIDE
     Indication: CHRONIC HEPATITIS C
     Dosage: 60 MG, UNK
     Route: 065
  3. SOFOSBUVIR [Interacting]
     Active Substance: SOFOSBUVIR
     Indication: CHRONIC HEPATITIS C
     Route: 065
  4. ATAZANAVIR SULFATE. [Interacting]
     Active Substance: ATAZANAVIR SULFATE
     Indication: CHRONIC HEPATITIS C
     Route: 065
  5. RITONAVIR. [Interacting]
     Active Substance: RITONAVIR
     Indication: HIV INFECTION
     Route: 065
  6. ATAZANAVIR SULFATE. [Interacting]
     Active Substance: ATAZANAVIR SULFATE
     Indication: HIV INFECTION
     Route: 065
  7. ABACAVIR. [Interacting]
     Active Substance: ABACAVIR
     Indication: CHRONIC HEPATITIS C
     Route: 065
  8. RIBAVIRIN. [Interacting]
     Active Substance: RIBAVIRIN
     Indication: CHRONIC HEPATITIS C
     Dosage: 600 MG, UNK
     Route: 065
  9. RITONAVIR. [Interacting]
     Active Substance: RITONAVIR
     Indication: CHRONIC HEPATITIS C
     Route: 065
  10. SOFOSBUVIR [Interacting]
     Active Substance: SOFOSBUVIR
     Indication: HIV INFECTION
     Dosage: 400 MG, UNK
     Route: 065
     Dates: start: 2015
  11. ABACAVIR. [Interacting]
     Active Substance: ABACAVIR
     Indication: HIV INFECTION
     Route: 065
  12. RIBAVIRIN. [Suspect]
     Active Substance: RIBAVIRIN
     Indication: HIV INFECTION
     Dosage: 1000 MG, UNK
     Route: 065
     Dates: start: 2015
  13. LAMIVUDINE. [Interacting]
     Active Substance: LAMIVUDINE
     Indication: CHRONIC HEPATITIS C
     Route: 065
  14. DACLATASVIR DIHYDROCHLORIDE [Interacting]
     Active Substance: DACLATASVIR DIHYDROCHLORIDE
     Indication: HIV INFECTION
     Dosage: 30 MG, UNK
     Route: 065
     Dates: start: 2015

REACTIONS (5)
  - Drug interaction [Unknown]
  - Cholelithiasis [Unknown]
  - Nephrolithiasis [Unknown]
  - Hyperbilirubinaemia [Recovering/Resolving]
  - Jaundice [Unknown]
